FAERS Safety Report 11793784 (Version 2)
Quarter: 2015Q4

REPORT INFORMATION
  Report Type: Spontaneous
  Country: US (occurrence: None)
  Receive Date: 20151201
  Receipt Date: 20151201
  Transmission Date: 20160305
  Serious: Yes (Other)
  Sender: FDA-Public Use
  Company Number: None

PATIENT
  Sex: Male

DRUGS (1)
  1. VENLAFAXINE [Suspect]
     Active Substance: VENLAFAXINE HYDROCHLORIDE

REACTIONS (8)
  - Drug withdrawal syndrome [None]
  - Nausea [None]
  - Insomnia [None]
  - Sensory level abnormal [None]
  - Dyskinesia [None]
  - Palpitations [None]
  - Tinnitus [None]
  - Hyperhidrosis [None]
